FAERS Safety Report 14664430 (Version 1)
Quarter: 2018Q1

REPORT INFORMATION
  Report Type: Spontaneous
  Country: US (occurrence: US)
  Receive Date: 20180319
  Receipt Date: 20180319
  Transmission Date: 20180509
  Serious: No
  Sender: FDA-Public Use
  Company Number: None

PATIENT
  Age: 62 Year
  Sex: Female

DRUGS (11)
  1. LEVOTHROIN [Concomitant]
  2. STELARA [Suspect]
     Active Substance: USTEKINUMAB
     Indication: PSORIATIC ARTHROPATHY
     Dosage: FREQUENCY - EVERY 12 WEEKS
     Route: 058
     Dates: start: 20171230
  3. TRAMADOL. [Concomitant]
     Active Substance: TRAMADOL
  4. AZITHROMYCIN ANHYDROUS. [Concomitant]
     Active Substance: AZITHROMYCIN ANHYDROUS
  5. DIAZEPAM. [Concomitant]
     Active Substance: DIAZEPAM
  6. PREDNISONE. [Concomitant]
     Active Substance: PREDNISONE
  7. VALACYCLOVIR [Concomitant]
     Active Substance: VALACYCLOVIR HYDROCHLORIDE
  8. ASA [Concomitant]
     Active Substance: ASPIRIN
  9. SUCRALFATE. [Concomitant]
     Active Substance: SUCRALFATE
  10. NITROFURANTN [Concomitant]
     Active Substance: NITROFURANTOIN
  11. FAMOTIDINE. [Concomitant]
     Active Substance: FAMOTIDINE

REACTIONS (5)
  - Hepatic enzyme increased [None]
  - Hernia [None]
  - Throat tightness [None]
  - Pain [None]
  - Myocardial infarction [None]

NARRATIVE: CASE EVENT DATE: 201802
